FAERS Safety Report 8514037-4 (Version None)
Quarter: 2012Q3

REPORT INFORMATION
  Report Type: 
  Country: None (occurrence: None)
  Receive Date: 20120717
  Receipt Date: 20120710
  Transmission Date: 20120928
  Serious: No
  Sender: FDA-Public Use
  Company Number: US-BAYER-2012-070030

PATIENT

DRUGS (2)
  1. MAGNEVIST [Suspect]
  2. GADAVIST [Suspect]

REACTIONS (3)
  - URTICARIA [None]
  - HYPERSENSITIVITY [None]
  - NAUSEA [None]
